FAERS Safety Report 7626600-3 (Version None)
Quarter: 2011Q3

REPORT INFORMATION
  Report Type: 
  Country: None (occurrence: None)
  Receive Date: 20110721
  Receipt Date: 20110712
  Transmission Date: 20111222
  Serious: Yes (Death, Hospitalization)
  Sender: FDA-Public Use
  Company Number: IT-GLAXOSMITHKLINE-B0734178A

PATIENT
  Sex: Male

DRUGS (6)
  1. ACIDOACETIL SALICILICO [Concomitant]
     Dosage: 100MG PER DAY
  2. PIPERACILLIN AND TAZOBACTAM [Concomitant]
     Dosage: 9MG PER DAY
  3. ARIXTRA [Suspect]
     Indication: IMMOBILISATION PROLONGED
     Dosage: 1250IU PER DAY
     Route: 058
     Dates: start: 20110701, end: 20110701
  4. CARVEDILOL [Concomitant]
     Dosage: 6.25MG PER DAY
  5. PLAVIX [Concomitant]
  6. FRAGMIN [Suspect]
     Indication: IMMOBILISATION PROLONGED
     Dosage: .4ML PER DAY
     Route: 058
     Dates: start: 20110630, end: 20110701

REACTIONS (2)
  - THROMBOCYTOPENIA [None]
  - DEATH [None]
